FAERS Safety Report 7738123-1 (Version None)
Quarter: 2011Q3

REPORT INFORMATION
  Report Type: 
  Country: None (occurrence: None)
  Receive Date: 20110908
  Receipt Date: 20110902
  Transmission Date: 20111222
  Serious: Yes (Hospitalization)
  Sender: FDA-Public Use
  Company Number: DE-ABBOTT-09P-062-0585558-00

PATIENT
  Sex: Female

DRUGS (8)
  1. HUMIRA [Suspect]
     Indication: RHEUMATOID ARTHRITIS
     Dosage: NOT PAUSED
     Route: 058
     Dates: start: 20080814
  2. AMISULPRID [Concomitant]
     Indication: MENTAL DISORDER
     Dosage: UNKNOWN DAILY DOSE
  3. LI+ [Concomitant]
     Indication: MENTAL DISORDER
  4. METHOTREXATE [Concomitant]
     Indication: RHEUMATOID ARTHRITIS
     Dosage: UNKNOWN DAILY DOSE
  5. AMITRIPTYLINE HCL [Concomitant]
     Indication: MENTAL DISORDER
     Dosage: UNKNOWN DAILY DOSE
  6. FOLIC ACID [Concomitant]
     Indication: RHEUMATOID ARTHRITIS
     Dosage: UNKNOWN DAILY DOSE
  7. ZOLOFT [Concomitant]
     Indication: MENTAL DISORDER
     Dosage: UNKNOWN DAILY DOSE
  8. LEVOTHYROXINE SODIUM [Concomitant]
     Indication: PRODUCT USED FOR UNKNOWN INDICATION
     Dosage: UNKNOWN DAILY DOSE

REACTIONS (3)
  - MENTAL DISORDER [None]
  - PSYCHOTIC DISORDER [None]
  - DEPRESSION [None]
